FAERS Safety Report 25125517 (Version 2)
Quarter: 2025Q1

REPORT INFORMATION
  Report Type: Spontaneous
  Country: BE (occurrence: BE)
  Receive Date: 20250326
  Receipt Date: 20250331
  Transmission Date: 20250408
  Serious: Yes (Death, Life-Threatening, Hospitalization, Other)
  Sender: PFIZER
  Company Number: BE-MLMSERVICE-20250317-PI449407-00270-1

PATIENT
  Age: 45 Year
  Sex: Female

DRUGS (10)
  1. METHYLPREDNISOLONE SODIUM SUCCINATE [Suspect]
     Active Substance: METHYLPREDNISOLONE SODIUM SUCCINATE
     Indication: Colitis
     Dosage: 1 MG/KG, DAILY (HIGH-DOSE)
     Route: 042
     Dates: start: 202302, end: 2023
  2. METHYLPREDNISOLONE SODIUM SUCCINATE [Suspect]
     Active Substance: METHYLPREDNISOLONE SODIUM SUCCINATE
     Route: 042
     Dates: start: 2023
  3. INFLIXIMAB [Suspect]
     Active Substance: INFLIXIMAB
     Indication: Colitis
     Route: 042
     Dates: start: 202302
  4. CARBOPLATIN [Suspect]
     Active Substance: CARBOPLATIN
     Indication: Triple negative breast cancer
     Dosage: UNK UNK, WEEKLY
     Dates: start: 202212, end: 202302
  5. CARBOPLATIN [Suspect]
     Active Substance: CARBOPLATIN
     Dates: start: 2023, end: 2023
  6. PACLITAXEL [Suspect]
     Active Substance: PACLITAXEL
     Indication: Triple negative breast cancer
     Dosage: UNK UNK, WEEKLY
     Dates: start: 202212, end: 202302
  7. PACLITAXEL [Suspect]
     Active Substance: PACLITAXEL
     Dates: start: 2023, end: 2023
  8. EPIRUBICIN HYDROCHLORIDE [Suspect]
     Active Substance: EPIRUBICIN HYDROCHLORIDE
     Indication: Triple negative breast cancer
     Dates: start: 2023, end: 2023
  9. PEMBROLIZUMAB [Suspect]
     Active Substance: PEMBROLIZUMAB
     Indication: Triple negative breast cancer
     Dosage: UNK UNK, EVERY 3 WEEKS
     Dates: start: 202212, end: 202302
  10. CYCLOPHOSPHAMIDE [Suspect]
     Active Substance: CYCLOPHOSPHAMIDE
     Indication: Triple negative breast cancer
     Dates: start: 2023, end: 2023

REACTIONS (10)
  - Myocarditis mycotic [Fatal]
  - Fungal endocarditis [Fatal]
  - Aspergillus infection [Fatal]
  - Hemiplegia [Not Recovered/Not Resolved]
  - Nervous system disorder [Not Recovered/Not Resolved]
  - Dysphagia [Not Recovered/Not Resolved]
  - Muscle atrophy [Not Recovered/Not Resolved]
  - Bacterial infection [Not Recovered/Not Resolved]
  - Bronchopulmonary aspergillosis [Not Recovered/Not Resolved]
  - Infectious thyroiditis [Not Recovered/Not Resolved]

NARRATIVE: CASE EVENT DATE: 20230301
